FAERS Safety Report 5393844-3 (Version None)
Quarter: 2007Q3

REPORT INFORMATION
  Report Type: 
  Country: None (occurrence: None)
  Receive Date: 20070723
  Receipt Date: 20070719
  Transmission Date: 20080115
  Serious: Yes (Other)
  Sender: FDA-Public Use
  Company Number: A0651413A

PATIENT
  Age: 69 Year
  Sex: Female
  Weight: 90.9 kg

DRUGS (10)
  1. VENTOLIN [Suspect]
     Indication: BRONCHOSPASM
     Dosage: 1PUFF SINGLE DOSE
     Route: 055
     Dates: start: 20070511, end: 20070511
  2. MICARDIS [Concomitant]
  3. LIPITOR [Concomitant]
  4. SINGULAIR [Concomitant]
  5. LASIX [Concomitant]
  6. ASPIRIN [Concomitant]
  7. SYNTHROID [Concomitant]
  8. POTASSIUM CHLORIDE [Concomitant]
  9. FISH OIL [Concomitant]
  10. UNSPECIFIED MEDICATION [Concomitant]

REACTIONS (7)
  - CHEST DISCOMFORT [None]
  - CHEST PAIN [None]
  - COLD SWEAT [None]
  - DIZZINESS [None]
  - HEART RATE INCREASED [None]
  - HYPERHIDROSIS [None]
  - NERVOUSNESS [None]
